FAERS Safety Report 20475936 (Version 1)
Quarter: 2022Q1

REPORT INFORMATION
  Report Type: Spontaneous
  Country: US (occurrence: None)
  Receive Date: 20220215
  Receipt Date: 20220215
  Transmission Date: 20220423
  Serious: Yes (Death)
  Sender: FDA-Public Use
  Company Number: None

PATIENT
  Sex: Female

DRUGS (1)
  1. ORENCIA [Suspect]
     Active Substance: ABATACEPT
     Indication: Rheumatoid arthritis
     Dosage: FREQUENCY: INJECTION, ONCE EVERY WEEK, UNDER THE SKIN, ONE PEN
     Route: 058
     Dates: start: 20180524, end: 202111

REACTIONS (1)
  - Death [None]
